FAERS Safety Report 10186470 (Version 1)
Quarter: 2014Q2

REPORT INFORMATION
  Report Type: Spontaneous
  Country: US (occurrence: US)
  Receive Date: 20140521
  Receipt Date: 20140521
  Transmission Date: 20141212
  Serious: No
  Sender: FDA-Public Use
  Company Number: US-ASTRAZENECA-2013SE86629

PATIENT
  Age: 62 Year
  Sex: Male
  Weight: 93 kg

DRUGS (1)
  1. PULMICORT FLEXHALER [Suspect]
     Indication: ASTHMA
     Dosage: 2PUFFS BID
     Route: 055
     Dates: start: 201309

REACTIONS (2)
  - Frustration [Unknown]
  - Drug dose omission [Unknown]
